FAERS Safety Report 5025611-4 (Version None)
Quarter: 2006Q2

REPORT INFORMATION
  Report Type: 
  Country: None (occurrence: None)
  Receive Date: 20060426
  Receipt Date: 20060314
  Transmission Date: 20061013
  Serious: Yes (Life-Threatening, Hospitalization, Other)
  Sender: FDA-Public Use
  Company Number: 2006022488

PATIENT
  Age: 60 Year
  Sex: Female
  Weight: 83.0083 kg

DRUGS (15)
  1. LYRICA [Suspect]
     Indication: NEUROPATHY
     Dosage: 100 MG (50 MG, 2 IN 1 D), ORAL
     Route: 048
     Dates: start: 20051120, end: 20051130
  2. LASIX [Concomitant]
  3. AMITRIPTYLINE HCL [Concomitant]
  4. PROZAC [Concomitant]
  5. ZOLPIDEM (ZOLPIDEM) [Concomitant]
  6. ALPRAZOLAM [Concomitant]
  7. NORCO [Concomitant]
  8. REGLAN [Concomitant]
  9. FLEXERIL [Concomitant]
  10. PROTONIX [Concomitant]
  11. ZANTAC [Concomitant]
  12. POTASSIUM CHLORIDE [Concomitant]
  13. PROMETHAZINE HYDROCHLORIDE TAB [Concomitant]
  14. GLUCOPHAGE XR (METFORMIN HYDROCHLORIDE) [Concomitant]
  15. IBUPROFEN [Concomitant]

REACTIONS (1)
  - PANCREATITIS ACUTE [None]
